FAERS Safety Report 7903465-3 (Version None)
Quarter: 2011Q4

REPORT INFORMATION
  Report Type: 
  Country: None (occurrence: None)
  Receive Date: 20111107
  Receipt Date: 20111024
  Transmission Date: 20120403
  Serious: Yes (Congenital Anomaly, Other)
  Sender: FDA-Public Use
  Company Number: FK201102494

PATIENT

DRUGS (3)
  1. PHENERGAN (PROMETHAZINE ) (PROMETHAZINE) [Concomitant]
  2. OXYTOCIN [Suspect]
     Indication: LABOUR INDUCTION
     Dosage: 6 MU/MIN, 12 MU/MIN, 18 MU/MIN, 24 MU/MIN, 30 MU/MIN, 32 MU/MIN, 40 MU/MIN, 42 MU/MIN,  42 MU/MIN
  3. DEMEROL (PETHIDINE HYDROCHLORIDE) (PETHIDINE HYDROCHLORIDE) [Concomitant]

REACTIONS (4)
  - NEUROLOGICAL EXAMINATION ABNORMAL [None]
  - FOETAL EXPOSURE DURING PREGNANCY [None]
  - EXTRASYSTOLES [None]
  - CONVULSION [None]
